FAERS Safety Report 12170483 (Version 1)
Quarter: 2016Q1

REPORT INFORMATION
  Report Type: Spontaneous
  Country: US (occurrence: None)
  Receive Date: 20160310
  Receipt Date: 20160310
  Transmission Date: 20160526
  Serious: Yes (Death)
  Sender: FDA-Public Use
  Company Number: None

PATIENT
  Age: 62 Year
  Sex: Female
  Weight: 45.81 kg

DRUGS (11)
  1. PEPCID [Concomitant]
     Active Substance: FAMOTIDINE
  2. CALCIUM AND VITAMIN D SUPPLEMENT [Concomitant]
  3. TACHYCARDIA [Concomitant]
  4. FENTANYL. [Concomitant]
     Active Substance: FENTANYL
  5. OYSCO [Concomitant]
  6. POLYETHYLENE GLYCOL [Concomitant]
     Active Substance: POLYETHYLENE GLYCOLS
  7. METOPROLOL. [Suspect]
     Active Substance: METOPROLOL
  8. HYDROMORPHONE [Concomitant]
     Active Substance: HYDROMORPHONE
  9. SENNA LAXATIVE [Concomitant]
     Active Substance: SENNOSIDES
  10. FASLODE/FULVESTRANT [Concomitant]
  11. ZOMETA [Suspect]
     Active Substance: ZOLEDRONIC ACID
     Indication: BREAST CANCER METASTATIC
     Dosage: ONCE EVERY 30 DAYS
     Route: 042
     Dates: start: 20130601, end: 20150218

REACTIONS (5)
  - Constipation [None]
  - Dyspnoea exertional [None]
  - Nausea [None]
  - Gastrooesophageal reflux disease [None]
  - Chest discomfort [None]

NARRATIVE: CASE EVENT DATE: 20160307
